FAERS Safety Report 12381373 (Version 1)
Quarter: 2016Q2

REPORT INFORMATION
  Report Type: Spontaneous
  Country: RO (occurrence: RO)
  Receive Date: 20160518
  Receipt Date: 20160518
  Transmission Date: 20160815
  Serious: Yes (Other)
  Sender: FDA-Public Use
  Company Number: RO-SA-2016SA094512

PATIENT

DRUGS (2)
  1. ENOXAPARIN SODIUM. [Suspect]
     Active Substance: ENOXAPARIN SODIUM
     Route: 064
  2. ACETYLSALICYLATE LYSINE [Suspect]
     Active Substance: ASPIRIN DL-LYSINE
     Route: 064

REACTIONS (2)
  - Conjoined twins [Unknown]
  - Foetal exposure during pregnancy [Unknown]
